FAERS Safety Report 20648723 (Version 1)
Quarter: 2022Q1

REPORT INFORMATION
  Report Type: Spontaneous
  Country: LB (occurrence: LB)
  Receive Date: 20220329
  Receipt Date: 20220329
  Transmission Date: 20220424
  Serious: Yes (Other)
  Sender: FDA-Public Use
  Company Number: LB-PFIZER INC-202101266096

PATIENT
  Age: 50 Year
  Sex: Female

DRUGS (2)
  1. IBRANCE [Suspect]
     Active Substance: PALBOCICLIB
     Indication: Breast cancer metastatic
     Dosage: 125 MG, CYCLIC (ONCE DAILY FOR 21 DAYS)
     Route: 048
     Dates: start: 202006
  2. FULVESTRANT [Concomitant]
     Active Substance: FULVESTRANT
     Dosage: UNK

REACTIONS (1)
  - Pulmonary oedema [Unknown]
